FAERS Safety Report 9392016 (Version 1)
Quarter: 2013Q3

REPORT INFORMATION
  Report Type: Spontaneous
  Country: US (occurrence: US)
  Receive Date: 20130709
  Receipt Date: 20130709
  Transmission Date: 20140515
  Serious: Yes (Life-Threatening)
  Sender: FDA-Public Use
  Company Number: CHPA2013US010820

PATIENT
  Sex: 0

DRUGS (1)
  1. EXCEDRIN UNKNOWN [Suspect]
     Dosage: UNK, UNK

REACTIONS (1)
  - Abdominal discomfort [Unknown]
